FAERS Safety Report 4422712-6 (Version None)
Quarter: 2004Q3

REPORT INFORMATION
  Report Type: 
  Country: None (occurrence: None)
  Receive Date: 20040713
  Receipt Date: 20030729
  Transmission Date: 20050211
  Serious: No
  Sender: FDA-Public Use
  Company Number: PHEH2003US06677

PATIENT
  Age: 30 Year
  Sex: Female

DRUGS (2)
  1. ELIDEL [Suspect]
     Indication: ECZEMA
     Dosage: BID, TOPICAL
     Route: 061
     Dates: start: 20030601
  2. CEPHALEXIN [Concomitant]

REACTIONS (5)
  - CHEST X-RAY ABNORMAL [None]
  - COUGH [None]
  - DIARRHOEA [None]
  - INCREASED UPPER AIRWAY SECRETION [None]
  - VOMITING [None]
